FAERS Safety Report 21745998 (Version 4)
Quarter: 2023Q1

REPORT INFORMATION
  Report Type: Other
  Country: US (occurrence: US)
  Receive Date: 20221219
  Receipt Date: 20230330
  Transmission Date: 20230418
  Serious: Yes (Hospitalization)
  Sender: FDA-Public Use
  Company Number: US-INTERCEPT-PM2022002200

PATIENT
  Age: 51 Year
  Sex: Female

DRUGS (2)
  1. OCALIVA [Suspect]
     Active Substance: OBETICHOLIC ACID
     Indication: Primary biliary cholangitis
     Dosage: 10 MILLIGRAM, QD
     Route: 048
     Dates: start: 20181203, end: 202212
  2. OCALIVA [Suspect]
     Active Substance: OBETICHOLIC ACID
     Indication: Product use in unapproved indication
     Dosage: 10 MILLIGRAM, QD
     Route: 048
     Dates: start: 202212

REACTIONS (7)
  - Cardiac failure [Not Recovered/Not Resolved]
  - Cardiac therapeutic procedure [Recovered/Resolved]
  - Tooth extraction [Recovered/Resolved]
  - Tooth injury [Unknown]
  - Therapy interrupted [Recovered/Resolved]
  - Product prescribing error [Not Recovered/Not Resolved]
  - Product dose omission in error [Recovered/Resolved]

NARRATIVE: CASE EVENT DATE: 20181203
